FAERS Safety Report 13801621 (Version 3)
Quarter: 2017Q3

REPORT INFORMATION
  Report Type: Report from Study
  Country: US (occurrence: US)
  Receive Date: 20170727
  Receipt Date: 20170905
  Transmission Date: 20171127
  Serious: Yes (Hospitalization)
  Sender: FDA-Public Use
  Company Number: PHHO2017US008397

PATIENT
  Age: 62 Year
  Sex: Male
  Weight: 99.7 kg

DRUGS (12)
  1. TORSEMIDE. [Suspect]
     Active Substance: TORSEMIDE
     Indication: SWELLING
     Dosage: 20 MG, PRN
     Route: 065
  2. BLINDED ENALAPRIL [Suspect]
     Active Substance: ENALAPRIL
     Dosage: CODE NOT BROKEN
     Route: 048
     Dates: start: 20170518
  3. BLINDED NO TREATMENT RECEIVED [Suspect]
     Active Substance: INVESTIGATIONAL PRODUCT
     Indication: CARDIAC FAILURE ACUTE
     Dosage: CODE NOT BROKEN
     Route: 048
     Dates: start: 20170411, end: 20170516
  4. BLINDED LCZ696 [Suspect]
     Active Substance: SACUBITRIL\VALSARTAN
     Dosage: CODE NOT BROKEN
     Route: 048
     Dates: start: 20170518
  5. BLINDED ENALAPRIL [Suspect]
     Active Substance: ENALAPRIL
     Indication: CARDIAC FAILURE ACUTE
     Dosage: CODE NOT BROKEN
     Route: 048
     Dates: start: 20170411, end: 20170516
  6. ALDACTONE [Suspect]
     Active Substance: SPIRONOLACTONE
     Indication: SWELLING
  7. TORSEMIDE. [Suspect]
     Active Substance: TORSEMIDE
     Indication: WEIGHT INCREASED
     Dosage: 20 MG, QD
     Route: 065
  8. BLINDED LCZ696 [Suspect]
     Active Substance: SACUBITRIL\VALSARTAN
     Indication: CARDIAC FAILURE ACUTE
     Dosage: CODE NOT BROKEN
     Route: 048
     Dates: start: 20170411, end: 20170516
  9. BLINDED NO TREATMENT RECEIVED [Suspect]
     Active Substance: INVESTIGATIONAL PRODUCT
     Dosage: CODE NOT BROKEN
     Route: 048
     Dates: start: 20170518
  10. SPIRONOLACTONE. [Suspect]
     Active Substance: SPIRONOLACTONE
     Indication: WEIGHT INCREASED
     Dosage: 50 MG, QD
     Route: 065
     Dates: start: 20170410
  11. SPIRONOLACTONE. [Suspect]
     Active Substance: SPIRONOLACTONE
     Indication: SWELLING
  12. ALDACTONE [Suspect]
     Active Substance: SPIRONOLACTONE
     Indication: WEIGHT INCREASED
     Dosage: 50 MG, QD
     Dates: start: 20170410

REACTIONS (1)
  - Hypovolaemia [Recovered/Resolved]

NARRATIVE: CASE EVENT DATE: 20170512
